FAERS Safety Report 23983661 (Version 1)
Quarter: 2024Q2

REPORT INFORMATION
  Report Type: Spontaneous
  Country: CN (occurrence: CN)
  Receive Date: 20240618
  Receipt Date: 20240618
  Transmission Date: 20240716
  Serious: Yes (Death, Hospitalization)
  Sender: FDA-Public Use
  Company Number: CN-SERVIER-S24006928

PATIENT

DRUGS (2)
  1. IVABRADINE [Suspect]
     Active Substance: IVABRADINE
     Indication: Heart failure with preserved ejection fraction
     Dosage: 5 MG, BID
     Route: 048
  2. DAPAGLIFLOZIN [Suspect]
     Active Substance: DAPAGLIFLOZIN
     Indication: Heart failure with preserved ejection fraction
     Dosage: 5 MG, QD
     Route: 048

REACTIONS (4)
  - Death [Fatal]
  - Hospitalisation [Fatal]
  - Adverse drug reaction [Fatal]
  - Product use issue [Fatal]
